FAERS Safety Report 17517605 (Version 4)
Quarter: 2020Q3

REPORT INFORMATION
  Report Type: Report from Study
  Country: US (occurrence: US)
  Receive Date: 20200309
  Receipt Date: 20200709
  Transmission Date: 20201102
  Serious: No
  Sender: FDA-Public Use
  Company Number: NVSC2020US064133

PATIENT
  Sex: Male

DRUGS (1)
  1. COSENTYX [Suspect]
     Active Substance: SECUKINUMAB
     Indication: ERYTHRODERMIC PSORIASIS
     Dosage: 150 MG
     Route: 065

REACTIONS (6)
  - Product use in unapproved indication [Unknown]
  - Skin exfoliation [Unknown]
  - Arthralgia [Unknown]
  - Erythrodermic psoriasis [Unknown]
  - Limb discomfort [Unknown]
  - Mobility decreased [Unknown]
